FAERS Safety Report 18053098 (Version 1)
Quarter: 2020Q3

REPORT INFORMATION
  Report Type: Spontaneous
  Country: PL (occurrence: PL)
  Receive Date: 20200721
  Receipt Date: 20200721
  Transmission Date: 20201103
  Serious: Yes (Other)
  Sender: FDA-Public Use
  Company Number: PL-PFIZER INC-2020274257

PATIENT
  Age: 70 Year
  Sex: Female
  Weight: 93 kg

DRUGS (1)
  1. SUTENT [Suspect]
     Active Substance: SUNITINIB MALATE
     Indication: RENAL CELL CARCINOMA
     Dosage: UNK (DOSE: 50 MG PER DAY ? COURSE 1; 37.5 MG PER DAY ?COURSE 2?5; 25 MG PER DAY ? COURSE 6?8)
     Route: 048

REACTIONS (19)
  - Thrombocytopenia [Unknown]
  - Chronic kidney disease [Unknown]
  - Neutropenia [Unknown]
  - Eructation [Unknown]
  - Urinary retention [Unknown]
  - Lymphocytosis [Unknown]
  - Leukocytosis [Unknown]
  - Asthenia [Unknown]
  - Abdominal pain [Unknown]
  - Aspartate aminotransferase increased [Unknown]
  - Hyperglycaemia [Unknown]
  - Decreased appetite [Unknown]
  - Hiatus hernia [Unknown]
  - Circulatory collapse [Unknown]
  - Oedema peripheral [Unknown]
  - Diarrhoea [Unknown]
  - Blood pressure increased [Unknown]
  - Cough [Unknown]
  - Weight decreased [Unknown]
